FAERS Safety Report 4853560-0 (Version None)
Quarter: 2005Q4

REPORT INFORMATION
  Report Type: 
  Country: None (occurrence: None)
  Receive Date: 20051209
  Receipt Date: 20051129
  Transmission Date: 20060501
  Serious: Yes (Hospitalization, Other)
  Sender: FDA-Public Use
  Company Number: 2005154314

PATIENT
  Age: 81 Year
  Sex: Male

DRUGS (8)
  1. LYRICA [Suspect]
     Indication: NEUROPATHY PERIPHERAL
     Dosage: 150 MG (50 MG, 3 IN 1 D), ORAL
     Route: 048
     Dates: start: 20051005, end: 20051012
  2. WARFARIN SODIUM [Suspect]
     Indication: ATRIAL FIBRILLATION
     Dosage: 2.5 MG (2.5 MG, 1 IN 1 D), ORAL
     Route: 048
  3. ASPIRIN [Suspect]
     Indication: ILL-DEFINED DISORDER
     Dosage: 81 MG (81 MG, 1 IN 1 D), ORAL
     Route: 048
  4. ZOCOR [Concomitant]
  5. OMEGA 3 (FISH OIL) [Concomitant]
  6. XANAX [Concomitant]
  7. OXYCODONE (OXYCODONE) [Concomitant]
  8. ATROVENT [Concomitant]

REACTIONS (23)
  - ANAEMIA MACROCYTIC [None]
  - ATRIAL FIBRILLATION [None]
  - BLOOD ALBUMIN DECREASED [None]
  - BLOOD BICARBONATE INCREASED [None]
  - BLOOD HOMOCYSTEINE INCREASED [None]
  - BLOOD UREA INCREASED [None]
  - CARDIAC MURMUR [None]
  - CHRONIC OBSTRUCTIVE PULMONARY DISEASE [None]
  - CONDITION AGGRAVATED [None]
  - CONTUSION [None]
  - DRUG INTERACTION [None]
  - DYSPHAGIA [None]
  - IMMUNOGLOBULINS ABNORMAL [None]
  - MEGAKARYOCYTES INCREASED [None]
  - NEUROPATHY PERIPHERAL [None]
  - OEDEMA PERIPHERAL [None]
  - PETECHIAE [None]
  - PLATELET DESTRUCTION INCREASED [None]
  - POLLAKIURIA [None]
  - RASH [None]
  - RETICULOCYTE COUNT INCREASED [None]
  - THROMBOCYTOPENIA [None]
  - WEIGHT DECREASED [None]
